FAERS Safety Report 10945642 (Version 3)
Quarter: 2016Q2

REPORT INFORMATION
  Report Type: Spontaneous
  Country: US (occurrence: US)
  Receive Date: 20150323
  Receipt Date: 20160413
  Transmission Date: 20160815
  Serious: Yes (Hospitalization, Disabling, Other)
  Sender: FDA-Public Use
  Company Number: US-009507513-1111USA00074

PATIENT
  Sex: Female
  Weight: 73.47 kg

DRUGS (8)
  1. FOSAMAX [Suspect]
     Active Substance: ALENDRONATE SODIUM
     Indication: OSTEOPOROSIS
     Dosage: 70 MG, UNKNOWN
     Route: 048
     Dates: start: 200601, end: 200802
  2. BONIVA [Suspect]
     Active Substance: IBANDRONATE SODIUM
     Indication: OSTEOPENIA
  3. FOSAMAX [Suspect]
     Active Substance: ALENDRONATE SODIUM
     Indication: OSTEOPENIA
  4. ALENDRONATE SODIUM. [Suspect]
     Active Substance: ALENDRONATE SODIUM
     Indication: OSTEOPENIA
  5. FOSAMAX [Suspect]
     Active Substance: ALENDRONATE SODIUM
     Indication: OSTEOPENIA
  6. ALENDRONATE SODIUM. [Suspect]
     Active Substance: ALENDRONATE SODIUM
     Indication: OSTEOPOROSIS
     Dosage: 70 MG, UNKNOWN
     Route: 048
     Dates: start: 20080307, end: 20080626
  7. FOSAMAX [Suspect]
     Active Substance: ALENDRONATE SODIUM
     Indication: OSTEOPOROSIS
     Dosage: 70 MG, QW
     Route: 048
     Dates: start: 2001, end: 200910
  8. BONIVA [Suspect]
     Active Substance: IBANDRONATE SODIUM
     Indication: OSTEOPOROSIS
     Dosage: 3 MG, EVERY 3 MONTHS
     Route: 065
     Dates: start: 2009, end: 2010

REACTIONS (39)
  - Parathyroidectomy [Unknown]
  - Intraductal proliferative breast lesion [Unknown]
  - Migraine [Unknown]
  - Fall [Unknown]
  - Haemorrhagic anaemia [Unknown]
  - Back pain [Not Recovered/Not Resolved]
  - Cataract [Unknown]
  - Femur fracture [Recovering/Resolving]
  - Femur fracture [Recovered/Resolved]
  - Vitamin D deficiency [Unknown]
  - Intervertebral disc degeneration [Unknown]
  - Neck pain [Not Recovered/Not Resolved]
  - Oropharyngeal pain [Recovering/Resolving]
  - Osteosclerosis [Unknown]
  - Drug administration error [Unknown]
  - Pain in extremity [Unknown]
  - Mammoplasty [Unknown]
  - Depression [Unknown]
  - Fracture delayed union [Unknown]
  - Hypertension [Unknown]
  - Breast reconstruction [Unknown]
  - Lumbar vertebral fracture [Unknown]
  - Urinary incontinence [Unknown]
  - Osteoarthritis [Unknown]
  - Blood pressure increased [Unknown]
  - Low turnover osteopathy [Not Recovered/Not Resolved]
  - Hyperparathyroidism primary [Unknown]
  - Hyperlipidaemia [Unknown]
  - Hypothyroidism [Unknown]
  - Gastrooesophageal reflux disease [Unknown]
  - Anxiety [Unknown]
  - Device breakage [Unknown]
  - Inappropriate schedule of drug administration [Unknown]
  - Mastectomy [Unknown]
  - Osteoporosis [Not Recovered/Not Resolved]
  - Scoliosis [Unknown]
  - Lordosis [Unknown]
  - Breast discomfort [Unknown]
  - Gastric ulcer [Unknown]

NARRATIVE: CASE EVENT DATE: 2003
